FAERS Safety Report 9746530 (Version 3)
Quarter: 2015Q4

REPORT INFORMATION
  Report Type: Report from Study
  Country: AR (occurrence: AR)
  Receive Date: 20131211
  Receipt Date: 20151224
  Transmission Date: 20160305
  Serious: Yes (Other)
  Sender: FDA-Public Use
  Company Number: PHHY2013AR145059

PATIENT
  Sex: Male

DRUGS (3)
  1. DIOVAN D [Suspect]
     Active Substance: HYDROCHLOROTHIAZIDE\VALSARTAN
     Dosage: UNK (80 MG)
     Route: 048
  2. DIOVAN D [Suspect]
     Active Substance: HYDROCHLOROTHIAZIDE\VALSARTAN
     Indication: HYPERTENSION
     Dosage: 1 DF (160/12.5), QD
     Route: 048
  3. DIOVAN D [Suspect]
     Active Substance: HYDROCHLOROTHIAZIDE\VALSARTAN
     Dosage: 1 DF (160/12.5), QD
     Route: 048

REACTIONS (4)
  - Blood cholesterol abnormal [Recovering/Resolving]
  - Incorrect dose administered [Unknown]
  - Type 1 diabetes mellitus [Unknown]
  - Drug prescribing error [Unknown]
